FAERS Safety Report 9479510 (Version 1)
Quarter: 2013Q3

REPORT INFORMATION
  Report Type: Spontaneous
  Country: GB (occurrence: GB)
  Receive Date: 20130827
  Receipt Date: 20130827
  Transmission Date: 20140515
  Serious: Yes (Other)
  Sender: FDA-Public Use
  Company Number: GB-WATSON-2013-15181

PATIENT
  Age: 15 Year
  Sex: Male

DRUGS (1)
  1. OXYBUTYNIN [Suspect]
     Indication: PRODUCT USED FOR UNKNOWN INDICATION
     Dosage: 5 MG, BID
     Route: 065
     Dates: start: 20130710, end: 20130724

REACTIONS (4)
  - Drug ineffective [Unknown]
  - Medication error [Unknown]
  - Expired drug administered [Unknown]
  - Urinary retention [Unknown]
